FAERS Safety Report 18783754 (Version 1)
Quarter: 2021Q1

REPORT INFORMATION
  Report Type: Spontaneous
  Country: DK (occurrence: DK)
  Receive Date: 20210125
  Receipt Date: 20210125
  Transmission Date: 20210419
  Serious: Yes (Other)
  Sender: FDA-Public Use
  Company Number: DK-LUPIN PHARMACEUTICALS INC.-2021-00542

PATIENT
  Age: 4 Decade
  Sex: Female

DRUGS (3)
  1. MODAFINIL. [Suspect]
     Active Substance: MODAFINIL
     Indication: HYPERSOMNIA
     Dosage: 200 MILLIGRAM, QD
     Route: 065
  2. METHYLPHENIDATE. [Suspect]
     Active Substance: METHYLPHENIDATE
     Indication: HYPERSOMNIA
     Dosage: UNK (MAXIMUM DOSE 120 MG DAILY)
     Route: 065
  3. PITOLISANT [Suspect]
     Active Substance: PITOLISANT
     Indication: HYPERSOMNIA
     Dosage: UNK (MAXIMUM DOSE 36MG DAILY)
     Route: 065

REACTIONS (1)
  - Drug ineffective [Unknown]
